FAERS Safety Report 8470568 (Version 3)
Quarter: 2013Q2

REPORT INFORMATION
  Report Type: Report from Study
  Country: US (occurrence: US)
  Receive Date: 20120321
  Receipt Date: 20130419
  Transmission Date: 20140414
  Serious: Yes (Death, Hospitalization, Other)
  Sender: FDA-Public Use
  Company Number: US-PFIZER INC-2012068993

PATIENT
  Age: 69 Year
  Sex: Female
  Weight: 63.6 kg

DRUGS (11)
  1. SUTENT [Suspect]
     Indication: UTERINE LEIOMYOSARCOMA
     Dosage: 50 MG, ONCE DAILY ON DAYS 1-28 OF A 42 DAY CYCLE FOR CYCLE 1 AND CYCLE 2
     Route: 048
     Dates: start: 20120130, end: 20120205
  2. PLAQUENIL [Suspect]
     Indication: UTERINE LEIOMYOSARCOMA
     Dosage: 200 MG TWICE DAILY ON DAYS 4-42 FOR CYCLE 1 AND ON DAYS 1-42 FOR CYCLE 2
     Route: 048
     Dates: start: 20120130, end: 20120205
  3. TOPROL XL [Concomitant]
  4. COLACE [Concomitant]
  5. LEVOXYL [Concomitant]
  6. NORVASC [Concomitant]
  7. ONDANSETRON [Concomitant]
  8. MAGNESIUM OXIDE [Concomitant]
  9. CRESTOR [Concomitant]
  10. GLUCOPHAGE [Concomitant]
  11. HYZAAR [Concomitant]

REACTIONS (7)
  - Death [Fatal]
  - Nausea [Unknown]
  - Lymphocyte count decreased [Unknown]
  - Blood creatinine increased [Unknown]
  - Delirium [Unknown]
  - Confusional state [Unknown]
  - Fatigue [Unknown]
